FAERS Safety Report 8163451-8 (Version None)
Quarter: 2012Q1

REPORT INFORMATION
  Report Type: 
  Country: None (occurrence: None)
  Receive Date: 20120224
  Receipt Date: 20120214
  Transmission Date: 20120608
  Serious: Yes (Hospitalization, Other)
  Sender: FDA-Public Use
  Company Number: US-ABBOTT-12P-163-0905240-00

PATIENT
  Sex: Female
  Weight: 88.53 kg

DRUGS (18)
  1. CRESTOR [Concomitant]
     Indication: BLOOD CHOLESTEROL
  2. NEXIUM [Concomitant]
     Indication: GASTROOESOPHAGEAL REFLUX DISEASE
  3. FOLIC ACID [Concomitant]
     Indication: CARDIOVASCULAR DISORDER
  4. ASPIRIN [Concomitant]
     Indication: CARDIAC DISORDER
     Dosage: 325 MG DAILY
  5. RAMIPRIL [Concomitant]
     Indication: BLOOD PRESSURE
  6. AMLODIPINE [Concomitant]
     Indication: CARDIAC DISORDER
  7. METFORMIN HCL [Concomitant]
     Indication: GLUCOSE TOLERANCE IMPAIRED
  8. WELCHOL [Concomitant]
     Indication: BLOOD TRIGLYCERIDES
  9. CRESTOR [Concomitant]
     Indication: BLOOD TRIGLYCERIDES
  10. CARVEDILOL [Concomitant]
     Indication: CARDIAC DISORDER
  11. NITROGLYCERIN [Concomitant]
     Indication: CHEST PAIN
  12. DICYCLOMINE [Concomitant]
     Indication: IRRITABLE BOWEL SYNDROME
  13. WELCHOL [Concomitant]
     Indication: BLOOD CHOLESTEROL
  14. NIASPAN [Suspect]
     Indication: BLOOD CHOLESTEROL INCREASED
     Dosage: 3000 MG AT BEDTIME
     Dates: start: 20080101
  15. POTASSIUM CHLORIDE [Concomitant]
     Indication: MINERAL SUPPLEMENTATION
  16. PLAVIX [Concomitant]
     Indication: ANTICOAGULANT THERAPY
  17. HYDROCHLOROTHIAZIDE [Concomitant]
     Indication: BLOOD PRESSURE
  18. RANEXA [Concomitant]
     Indication: CARDIAC DISORDER

REACTIONS (9)
  - STENT PLACEMENT [None]
  - CHEST PAIN [None]
  - VOMITING [None]
  - NAUSEA [None]
  - FEELING HOT [None]
  - DEHYDRATION [None]
  - NECK PAIN [None]
  - DIARRHOEA [None]
  - FLUSHING [None]
